FAERS Safety Report 9845997 (Version 2)
Quarter: 2014Q1

REPORT INFORMATION
  Report Type: Spontaneous
  Country: US (occurrence: US)
  Receive Date: 20140127
  Receipt Date: 20140127
  Transmission Date: 20141002
  Serious: Yes (Other)
  Sender: FDA-Public Use
  Company Number: US-ACORDA-ACO_101060_2013

PATIENT
  Age: 61 Year
  Sex: Female

DRUGS (4)
  1. AMPYRA [Suspect]
     Indication: GAIT DISTURBANCE
     Dosage: 10 MG, BID
     Route: 048
     Dates: start: 20131215
  2. CYCLOBENZAPRINE [Concomitant]
     Indication: PRODUCT USED FOR UNKNOWN INDICATION
     Dosage: UNK,UNK
     Route: 065
  3. ANTIVERT [Concomitant]
     Indication: PRODUCT USED FOR UNKNOWN INDICATION
     Dosage: UNK,UNK
     Route: 065
  4. AVONEX [Concomitant]
     Indication: MULTIPLE SCLEROSIS
     Dosage: UNK,UNK
     Route: 065

REACTIONS (10)
  - Convulsion [Unknown]
  - Feeling abnormal [Recovering/Resolving]
  - Somnolence [Recovering/Resolving]
  - Hypersomnia [Unknown]
  - Restlessness [Recovering/Resolving]
  - Muscle spasms [Recovering/Resolving]
  - Vertigo [Recovering/Resolving]
  - Balance disorder [Unknown]
  - Dizziness [Unknown]
  - Gait disturbance [Unknown]
